FAERS Safety Report 16812478 (Version 7)
Quarter: 2024Q1

REPORT INFORMATION
  Report Type: Report from Study
  Country: JP (occurrence: JP)
  Receive Date: 20190916
  Receipt Date: 20240228
  Transmission Date: 20240409
  Serious: Yes (Life-Threatening, Hospitalization)
  Sender: FDA-Public Use
  Company Number: JP-JT-EVA201903140GILEAD-001

PATIENT
  Age: 71 Year
  Sex: Male

DRUGS (16)
  1. EMTRICITABINE\TENOFOVIR [Suspect]
     Active Substance: EMTRICITABINE\TENOFOVIR
     Indication: HIV infection
     Dosage: 1 DOSAGE FORM, QD
     Route: 048
     Dates: start: 20170802, end: 20200121
  2. ISENTRESS [Suspect]
     Active Substance: RALTEGRAVIR POTASSIUM
     Indication: HIV infection
     Dosage: 1 DOSAGE FORM, QD
     Route: 048
     Dates: start: 20180801, end: 20180904
  3. ISENTRESS [Suspect]
     Active Substance: RALTEGRAVIR POTASSIUM
     Dosage: 2 DOSAGE FORM, QD
     Route: 048
     Dates: start: 20180905, end: 20200731
  4. DARUNAVIR [Suspect]
     Active Substance: DARUNAVIR
     Indication: HIV infection
     Dosage: 800 MG, QD
     Route: 048
     Dates: start: 20170802, end: 20200121
  5. NORVIR [Suspect]
     Active Substance: RITONAVIR
     Indication: HIV infection
     Dosage: 100 MG, QD
     Route: 048
     Dates: start: 20170802, end: 20200121
  6. LIXISENATIDE [Suspect]
     Active Substance: LIXISENATIDE
     Indication: Product used for unknown indication
     Dosage: UNK
     Route: 065
     Dates: start: 20190802, end: 202202
  7. SYMTUZA [Suspect]
     Active Substance: COBICISTAT\DARUNAVIR\EMTRICITABINE\TENOFOVIR ALAFENAMIDE
     Indication: HIV infection
     Dosage: 1 DOSAGE FORM
     Route: 065
     Dates: start: 20200122, end: 20230531
  8. ISENTRESS [Concomitant]
     Active Substance: RALTEGRAVIR POTASSIUM
     Indication: HIV infection
     Dosage: 800 MG
     Dates: start: 20170802, end: 20180731
  9. CANDESARTAN [Concomitant]
     Active Substance: CANDESARTAN
     Indication: Disease complication
     Dosage: UNK
     Route: 048
     Dates: start: 20170802, end: 20200520
  10. CRESTOR [Concomitant]
     Active Substance: ROSUVASTATIN CALCIUM
     Indication: Disease complication
     Dosage: UNK
     Route: 048
     Dates: start: 20170802, end: 20220823
  11. BROTIZOLAM [Concomitant]
     Active Substance: BROTIZOLAM
     Indication: Disease complication
     Dosage: UNK
     Route: 048
     Dates: start: 20170802, end: 20220823
  12. FEBUXOSTAT [Concomitant]
     Active Substance: FEBUXOSTAT
     Indication: Disease complication
     Dosage: UNK
     Route: 048
     Dates: start: 20170802, end: 20220823
  13. NOVORAPID [Concomitant]
     Active Substance: INSULIN ASPART
     Indication: Disease complication
     Dosage: UNK
     Route: 058
     Dates: start: 20170802, end: 20220823
  14. IPRAGLIFLOZIN L-PROLINE [Concomitant]
     Active Substance: IPRAGLIFLOZIN L-PROLINE
     Indication: Disease complication
     Dosage: UNK
     Route: 048
     Dates: start: 20170802, end: 20190905
  15. METGLUCO [Concomitant]
     Active Substance: METFORMIN HYDROCHLORIDE
     Dosage: UNK
     Dates: start: 20190906, end: 20220823
  16. ZETIA [Concomitant]
     Active Substance: EZETIMIBE
     Dosage: UNK
     Dates: start: 20191011

REACTIONS (3)
  - Angina pectoris [Recovering/Resolving]
  - Abdominal discomfort [Not Recovered/Not Resolved]
  - Underdose [Recovered/Resolved]

NARRATIVE: CASE EVENT DATE: 20180801
